FAERS Safety Report 23424423 (Version 2)
Quarter: 2024Q3

REPORT INFORMATION
  Report Type: Report from Study
  Country: GB (occurrence: GB)
  Receive Date: 20240120
  Receipt Date: 20240702
  Transmission Date: 20241016
  Serious: Yes (Other)
  Sender: UCB
  Company Number: GB-UCBSA-2023000052

PATIENT
  Age: 64 Year
  Sex: Female

DRUGS (2)
  1. CERTOLIZUMAB PEGOL [Suspect]
     Active Substance: CERTOLIZUMAB PEGOL
     Indication: Psoriatic arthropathy
     Dosage: 200 MILLIGRAM, EV 2 WEEKS(QOW)
     Route: 058
  2. CERTOLIZUMAB PEGOL [Suspect]
     Active Substance: CERTOLIZUMAB PEGOL
     Dosage: 400 MILLIGRAM, EV 2 WEEKS(QOW)
     Route: 058

REACTIONS (10)
  - Sepsis [Unknown]
  - Alopecia [Unknown]
  - Psoriasis [Unknown]
  - Malaise [Unknown]
  - Abscess [Unknown]
  - Product availability issue [Unknown]
  - Therapy interrupted [Unknown]
  - Product dose omission issue [Unknown]
  - Device defective [Unknown]
  - Product use issue [Unknown]

NARRATIVE: CASE EVENT DATE: 20221201
